FAERS Safety Report 12701801 (Version 1)
Quarter: 2016Q3

REPORT INFORMATION
  Report Type: Spontaneous
  Country: SG (occurrence: None)
  Receive Date: 20160830
  Receipt Date: 20160830
  Transmission Date: 20161109
  Serious: Yes (Hospitalization)
  Sender: FDA-Public Use
  Company Number: None

PATIENT
  Age: 56 Year
  Sex: Male
  Weight: 57.6 kg

DRUGS (1)
  1. CISPLATIN. [Suspect]
     Active Substance: CISPLATIN
     Dates: end: 20160810

REACTIONS (9)
  - Neutrophil count decreased [None]
  - Skin erosion [None]
  - Chills [None]
  - Productive cough [None]
  - Mucosal inflammation [None]
  - Rhinorrhoea [None]
  - Body temperature increased [None]
  - Oral candidiasis [None]
  - White blood cell count decreased [None]

NARRATIVE: CASE EVENT DATE: 20160823
